FAERS Safety Report 17912155 (Version 3)
Quarter: 2020Q2

REPORT INFORMATION
  Report Type: Spontaneous
  Country: PT (occurrence: PT)
  Receive Date: 20200618
  Receipt Date: 20200630
  Transmission Date: 20200714
  Serious: Yes (Death, Hospitalization)
  Sender: FDA-Public Use
  Company Number: NVSC2020PT170360

PATIENT
  Age: 52 Year
  Sex: Male

DRUGS (3)
  1. PIPERACILLIN/TAZOBACTAM [Suspect]
     Active Substance: PIPERACILLIN SODIUM\TAZOBACTAM SODIUM
     Indication: SEPSIS
     Dosage: 4.5 G, Q6H
     Route: 042
     Dates: start: 20150213, end: 20150214
  2. AMOXICILLIN TRIHYDRATE,POTASSIUM CLAVULANATE [Suspect]
     Active Substance: AMOXICILLIN\CLAVULANATE POTASSIUM
     Indication: PNEUMONIA ASPIRATION
     Dosage: UNK
     Route: 065
  3. VANCOMYCIN [Suspect]
     Active Substance: VANCOMYCIN
     Indication: SEPSIS
     Dosage: UNK
     Route: 042
     Dates: start: 20200213, end: 20200214

REACTIONS (7)
  - Dyspnoea [Unknown]
  - Respiratory failure [Fatal]
  - Empyema [Fatal]
  - Acute pulmonary oedema [Fatal]
  - Pleural infection [Unknown]
  - Septic shock [Fatal]
  - Condition aggravated [Fatal]
